FAERS Safety Report 8428674-9 (Version None)
Quarter: 2012Q2

REPORT INFORMATION
  Report Type: 
  Country: None (occurrence: None)
  Receive Date: 20120612
  Receipt Date: 20120606
  Transmission Date: 20120825
  Serious: No
  Sender: FDA-Public Use
  Company Number: US-PFIZER INC-2012136558

PATIENT
  Sex: Female
  Weight: 68.027 kg

DRUGS (2)
  1. VFEND [Suspect]
     Indication: BRONCHITIS FUNGAL
     Dosage: 200 MG, 2X/DAY
     Dates: start: 20120101
  2. CELEXA [Suspect]
     Indication: DEPRESSION
     Dosage: UNK

REACTIONS (1)
  - EYE DISORDER [None]
